FAERS Safety Report 4650615-0 (Version None)
Quarter: 2005Q2

REPORT INFORMATION
  Report Type: 
  Country: None (occurrence: None)
  Receive Date: 20050428
  Receipt Date: 20050428
  Transmission Date: 20051028
  Serious: No
  Sender: FDA-Public Use
  Company Number: None

PATIENT
  Sex: Male
  Weight: 79.5 kg

DRUGS (8)
  1. CYCLOPHOSPHAMIDE [Suspect]
     Indication: NON-HODGKIN'S LYMPHOMA
     Dosage: 750 MG/M2 IV ON DAY 1, OVER 15 MINUTES
     Route: 042
     Dates: start: 20041007
  2. DOXORUBICIN HCL [Suspect]
     Dosage: 50 MG/M2 IV ON DAY 1
     Route: 042
  3. PREDNISONE [Suspect]
     Dosage: 100 MG/DAY PO ON DAYS 1-5
     Route: 048
  4. VINCRISTINE [Suspect]
     Dosage: 1.4 MG/M2 IV ON DAY 1
     Route: 042
  5. RITUXIMAB [Suspect]
     Dosage: 375 MG/M2 IV ON DAY 1
     Route: 042
  6. CARMUSTINE [Suspect]
     Dosage: 150 MG/M2 DAY -6, -5, -4 IV
     Route: 042
  7. ETOPOSIDE [Suspect]
     Dosage: 60 MG/KG DAY -4 IV
     Route: 042
  8. CYCLOPHOSPHAMIDE [Suspect]
     Dosage: 100 MG/KG DAY -2 IV
     Route: 042

REACTIONS (17)
  - ACUTE RESPIRATORY DISTRESS SYNDROME [None]
  - ASTHENIA [None]
  - BACTERIAL INFECTION [None]
  - CHILLS [None]
  - DRUG TOXICITY [None]
  - DYSPNOEA [None]
  - FUNGAL INFECTION [None]
  - HYPOXIA [None]
  - LOSS OF CONSCIOUSNESS [None]
  - LUNG INFILTRATION [None]
  - NOCARDIOSIS [None]
  - PNEUMOCYSTIS JIROVECI PNEUMONIA [None]
  - PSEUDOMONAS INFECTION [None]
  - PYREXIA [None]
  - RESPIRATORY ACIDOSIS [None]
  - RESPIRATORY FAILURE [None]
  - STEM CELL TRANSPLANT [None]
